FAERS Safety Report 4716482-1 (Version None)
Quarter: 2005Q3

REPORT INFORMATION
  Report Type: 
  Country: None (occurrence: None)
  Receive Date: 20050714
  Receipt Date: 20050701
  Transmission Date: 20060218
  Serious: Yes (Other)
  Sender: FDA-Public Use
  Company Number: 2005087998

PATIENT
  Age: 78 Year
  Sex: Male
  Weight: 76 kg

DRUGS (8)
  1. CAVERJECT [Suspect]
     Indication: ERECTILE DYSFUNCTION
     Dosage: 20 MCG, PARENTERAL
     Route: 051
     Dates: start: 19980101, end: 20050601
  2. DIABEX (METFORMIN HYDROCHLORIDE) [Concomitant]
  3. ANTI-DIABETICS (ANTI-DIABETICS) [Concomitant]
  4. ANTIHYPERTENSIVES (ANTIHYPERTENSIVES) [Concomitant]
  5. OROXINE (LEVOTHYROXINE SODIUM) [Concomitant]
  6. RABEPRAZOLE SODIUM [Concomitant]
  7. RAMIPRIL [Concomitant]
  8. DIAMICRON (GLICLAZIDE) [Concomitant]

REACTIONS (5)
  - ANORGASMIA [None]
  - DRUG ADMINISTRATION ERROR [None]
  - ERECTION INCREASED [None]
  - OVERDOSE [None]
  - PAINFUL ERECTION [None]
